FAERS Safety Report 19940969 (Version 2)
Quarter: 2021Q4

REPORT INFORMATION
  Report Type: Spontaneous
  Country: CN (occurrence: CN)
  Receive Date: 20211011
  Receipt Date: 20211121
  Transmission Date: 20220303
  Serious: Yes (Other)
  Sender: FDA-Public Use
  Company Number: CN-009507513-2110CHN001901

PATIENT
  Age: 57 Year
  Sex: Male

DRUGS (3)
  1. PEMBROLIZUMAB [Suspect]
     Active Substance: PEMBROLIZUMAB
     Indication: Small cell lung cancer extensive stage
     Dosage: 100 MILLIGRAM, Q3W
     Dates: start: 201609
  2. IPILIMUMAB [Suspect]
     Active Substance: IPILIMUMAB
     Indication: Small cell lung cancer extensive stage
     Dosage: 50 MILLIGRAM, Q3W
     Dates: start: 201609
  3. BEVACIZUMAB [Suspect]
     Active Substance: BEVACIZUMAB
     Indication: Small cell lung cancer extensive stage
     Dosage: 400 MILLIGRAM, Q3W

REACTIONS (2)
  - Immune-mediated endocrinopathy [Unknown]
  - Underdose [Unknown]

NARRATIVE: CASE EVENT DATE: 20160901
